FAERS Safety Report 17107630 (Version 3)
Quarter: 2020Q1

REPORT INFORMATION
  Report Type: Report from Study
  Country: CO (occurrence: CO)
  Receive Date: 20191203
  Receipt Date: 20200108
  Transmission Date: 20200409
  Serious: Yes (Hospitalization)
  Sender: FDA-Public Use
  Company Number: CO-INCYTE CORPORATION-2019IN003339

PATIENT

DRUGS (3)
  1. OMEPRAZOLE. [Concomitant]
     Active Substance: OMEPRAZOLE
     Indication: PRODUCT USED FOR UNKNOWN INDICATION
     Dosage: UNK
     Route: 065
  2. JAKAVI [Suspect]
     Active Substance: RUXOLITINIB
     Indication: MYELOFIBROSIS
     Dosage: 40 MG, QD
     Route: 048
     Dates: start: 2015
  3. JAKAVI [Suspect]
     Active Substance: RUXOLITINIB
     Dosage: 20 MG, BID (EVERY 12 HOUR)
     Route: 048

REACTIONS (9)
  - Drug ineffective [Unknown]
  - General physical health deterioration [Not Recovered/Not Resolved]
  - Seizure [Unknown]
  - Swelling face [Unknown]
  - Headache [Unknown]
  - Inappropriate schedule of product administration [Unknown]
  - Blood uric acid increased [Not Recovered/Not Resolved]
  - White blood cell count increased [Unknown]
  - Malaise [Unknown]

NARRATIVE: CASE EVENT DATE: 20191004
